FAERS Safety Report 8346944-X (Version None)
Quarter: 2012Q2

REPORT INFORMATION
  Report Type: 
  Country: None (occurrence: None)
  Receive Date: 20120509
  Receipt Date: 20120427
  Transmission Date: 20120825
  Serious: Yes (Death, Hospitalization, Disabling, Other)
  Sender: FDA-Public Use
  Company Number: GB-TEVA-2011001508

PATIENT
  Age: 51 Year
  Sex: Female
  Weight: 50 kg

DRUGS (7)
  1. SILDENAFIL [Suspect]
     Indication: PULMONARY FIBROSIS
     Dosage: 30 MILLIGRAM;
     Route: 042
     Dates: start: 20110211, end: 20110214
  2. MIDAZOLAM [Concomitant]
  3. BENDAMUSTINE HCL [Suspect]
     Indication: B-CELL LYMPHOMA
     Route: 042
     Dates: start: 20100601, end: 20101201
  4. NOREPINEPHRINE BITARTRATE [Concomitant]
     Indication: BLOOD PRESSURE
  5. MORPHINE [Concomitant]
  6. RITUXIMAB [Suspect]
     Indication: B-CELL LYMPHOMA
     Dates: start: 20100601, end: 20101201
  7. SILDENAFIL [Suspect]
     Indication: PULMONARY ARTERIAL HYPERTENSION

REACTIONS (3)
  - PULMONARY HYPERTENSION [None]
  - HYPOTENSION [None]
  - PULMONARY FIBROSIS [None]
